FAERS Safety Report 17804567 (Version 2)
Quarter: 2021Q4

REPORT INFORMATION
  Report Type: 
  Country: None (occurrence: None)
  Receive Date: 20200519
  Receipt Date: 20211005
  Transmission Date: 20220303
  Serious: Yes (Other)
  Sender: FDA-Public Use
  Company Number: None

PATIENT
  Age: 55 Year
  Sex: Male
  Weight: 57 kg

DRUGS (1)
  1. CAPASTAT SULFATE [Suspect]
     Active Substance: CAPREOMYCIN SULFATE

REACTIONS (7)
  - Anaemia [Recovered/Resolved]
  - Visual impairment [Unknown]
  - Blood magnesium decreased [Unknown]
  - Blood calcium decreased [Unknown]
  - Blood creatinine increased [Unknown]
  - Creatinine renal clearance decreased [Unknown]
  - Chronic gastritis [Unknown]
